FAERS Safety Report 14344001 (Version 1)
Quarter: 2018Q1

REPORT INFORMATION
  Report Type: Spontaneous
  Country: US (occurrence: US)
  Receive Date: 20180102
  Receipt Date: 20180102
  Transmission Date: 20180509
  Serious: No
  Sender: FDA-Public Use
  Company Number: US-GALDERMA-US17011648

PATIENT
  Sex: Female

DRUGS (1)
  1. SOOLANTRA [Suspect]
     Active Substance: IVERMECTIN
     Indication: ROSACEA
     Dosage: 1%
     Route: 061
     Dates: start: 20171113, end: 20171115

REACTIONS (6)
  - Dermatitis contact [Unknown]
  - Rash papular [Unknown]
  - Skin reaction [Unknown]
  - Erythema [Unknown]
  - Oedema [Unknown]
  - Rash pustular [Unknown]
